FAERS Safety Report 9220117 (Version 1)
Quarter: 2013Q1

REPORT INFORMATION
  Report Type: Spontaneous
  Country: US (occurrence: None)
  Receive Date: 20120830
  Receipt Date: 20120830
  Transmission Date: 20140127
  Serious: Yes (Other)
  Sender: FDA-Public Use
  Company Number: PHEH2011US012198

PATIENT
  Sex: Male

DRUGS (1)
  1. SANDOSTATIN DEPOT (OCTREOTIDE WITH POLY (D-L-LACTIDE-CO-GLYCOLIDE) UNKNOWN [Suspect]
     Indication: METASTATIC CARCINOID TUMOUR

REACTIONS (14)
  - Metastases to liver [None]
  - Polyuria [None]
  - Anxiety [None]
  - Malaise [None]
  - Weight decreased [None]
  - Hyperosmolar state [None]
  - Thirst decreased [None]
  - Diabetes mellitus inadequate control [None]
  - Decreased appetite [None]
  - Abdominal pain upper [None]
  - Dehydration [None]
  - Asthenia [None]
  - Fatigue [None]
  - Hepatic lesion [None]
